FAERS Safety Report 8309857-5 (Version None)
Quarter: 2012Q2

REPORT INFORMATION
  Report Type: 
  Country: None (occurrence: None)
  Receive Date: 20120423
  Receipt Date: 20120412
  Transmission Date: 20120825
  Serious: Yes (Other)
  Sender: FDA-Public Use
  Company Number: AUR-APL-2012-01376

PATIENT
  Age: 71 Year
  Sex: Female

DRUGS (14)
  1. CIPROFLOXACIN [Suspect]
     Indication: PRODUCT USED FOR UNKNOWN INDICATION
     Dosage: 1500 MG (750 MG, 2 IN 1 D), ORAL,
     Route: 048
     Dates: start: 20120110, end: 20120211
  2. ATORVASTATIN CALCIUM [Concomitant]
  3. FERROUS SULFATE TAB [Concomitant]
  4. TEICOPLANIN [Concomitant]
  5. ASPIRIN [Concomitant]
  6. MAGNASPART (MAGNESIUM ASPARTATE) [Suspect]
     Indication: HYPOMAGNESAEMIA
     Dosage: 10 (MILLIMOL (10 MILLIMOL, 1 IN 1 D), ORAL
     Route: 048
     Dates: start: 20120113, end: 20120209
  7. NITROFURANTOIN [Concomitant]
  8. FUROSEMIDE [Concomitant]
  9. PIPERACILLIN AND TAZOBACTAM [Suspect]
     Indication: PRODUCT USED FOR UNKNOWN INDICATION
     Dosage: 4.5 GM (4.5 GM, 1 IN 1 D), INTRAVENOUS DRIP
     Route: 041
     Dates: start: 20120221, end: 20120222
  10. CIPROFLOXACIN [Suspect]
     Indication: PRODUCT USED FOR UNKNOWN INDICATION
     Dosage: 1200 MG (600 MG, 2 IN 1 D), INTRAVENOUS
     Route: 042
     Dates: start: 20120111, end: 20120206
  11. LANSOPRAZOLE [Concomitant]
  12. MAGNESIUM SULFATE [Concomitant]
  13. NICORANDIL [Concomitant]
  14. BISOPROLOL FUMARATE [Concomitant]

REACTIONS (6)
  - SKIN WARM [None]
  - ERYTHEMA [None]
  - RASH [None]
  - PARAESTHESIA [None]
  - PRURITUS [None]
  - RASH MACULO-PAPULAR [None]
